FAERS Safety Report 11027006 (Version 2)
Quarter: 2015Q2

REPORT INFORMATION
  Report Type: Spontaneous
  Country: IT (occurrence: IT)
  Receive Date: 20150414
  Receipt Date: 20150423
  Transmission Date: 20150821
  Serious: No
  Sender: FDA-Public Use
  Company Number: IT-009507513-1504ITA009043

PATIENT
  Age: 31 Year
  Sex: Female

DRUGS (1)
  1. BETAMETHASONE [Suspect]
     Active Substance: BETAMETHASONE
     Indication: NEONATAL RESPIRATORY DISTRESS SYNDROME PROPHYLAXIS
     Dosage: UNK

REACTIONS (1)
  - Maternal exposure during pregnancy [Unknown]
